FAERS Safety Report 5388076-9 (Version None)
Quarter: 2007Q3

REPORT INFORMATION
  Report Type: 
  Country: None (occurrence: None)
  Receive Date: 20070716
  Receipt Date: 20061102
  Transmission Date: 20080115
  Serious: No
  Sender: FDA-Public Use
  Company Number: A0625808A

PATIENT
  Age: 65 Year
  Sex: Female

DRUGS (5)
  1. NICORETTE [Suspect]
  2. NICORETTE (MINT) [Suspect]
  3. NICORETTE [Suspect]
  4. NICORETTE [Suspect]
  5. ESTROGEN [Concomitant]

REACTIONS (4)
  - BLOOD PRESSURE INCREASED [None]
  - HEART RATE INCREASED [None]
  - INTENTIONAL DRUG MISUSE [None]
  - PALPITATIONS [None]
